FAERS Safety Report 12902230 (Version 2)
Quarter: 2016Q4

REPORT INFORMATION
  Report Type: Spontaneous
  Country: US (occurrence: US)
  Receive Date: 20161102
  Receipt Date: 20161114
  Transmission Date: 20170207
  Serious: Yes (Other)
  Sender: FDA-Public Use
  Company Number: US-PFIZER INC-2016508621

PATIENT
  Age: 73 Year
  Sex: Male
  Weight: 76.66 kg

DRUGS (7)
  1. BABY ASPIRIN [Concomitant]
     Active Substance: ASPIRIN
     Indication: ANTICOAGULANT THERAPY
     Dosage: 81 MG, 1X/DAY
  2. LISINOPRIL. [Concomitant]
     Active Substance: LISINOPRIL
     Indication: BLOOD PRESSURE ABNORMAL
     Dosage: 5 MG, DAILY
     Route: 048
  3. LOVASTATIN. [Concomitant]
     Active Substance: LOVASTATIN
     Indication: BLOOD CHOLESTEROL ABNORMAL
  4. CAVERJECT [Suspect]
     Active Substance: ALPROSTADIL
     Indication: ERECTILE DYSFUNCTION
     Dosage: 40 MCG (INJECT NO MORE THAN THREE TIMES A WEEK)
     Dates: start: 20161030
  5. CAVERJECT [Suspect]
     Active Substance: ALPROSTADIL
     Dosage: 40 UG, ONCE INJECTED IN HIS PENIS
     Dates: end: 20061106
  6. LOVASTATIN. [Concomitant]
     Active Substance: LOVASTATIN
     Indication: BLOOD PRESSURE ABNORMAL
     Dosage: 20 MG, 1X/DAY (MORNING)
  7. LISINOPRIL. [Concomitant]
     Active Substance: LISINOPRIL
     Indication: BLOOD CHOLESTEROL ABNORMAL

REACTIONS (3)
  - Product quality issue [Not Recovered/Not Resolved]
  - Drug ineffective [Unknown]
  - Foreign body [Not Recovered/Not Resolved]

NARRATIVE: CASE EVENT DATE: 20161030
